FAERS Safety Report 13445110 (Version 1)
Quarter: 2017Q2

REPORT INFORMATION
  Report Type: Spontaneous
  Country: DE (occurrence: DE)
  Receive Date: 20170414
  Receipt Date: 20170414
  Transmission Date: 20170830
  Serious: Yes (Hospitalization)
  Sender: FDA-Public Use
  Company Number: DE-TEVA-757362GER

PATIENT
  Age: 80 Year
  Sex: Female
  Weight: 70 kg

DRUGS (6)
  1. CIPROFLOXACIN. [Suspect]
     Active Substance: CIPROFLOXACIN
     Indication: URINARY TRACT INFECTION
     Dosage: 500 MILLIGRAM DAILY;
     Route: 048
     Dates: start: 20170309, end: 20170312
  2. METOPROLOLSUCCINAT [Concomitant]
     Active Substance: METOPROLOL SUCCINATE
     Dosage: 1 X 1
     Route: 048
     Dates: start: 2000
  3. DEKRISTOL 20000 [Concomitant]
     Active Substance: CHOLECALCIFEROL
     Indication: OSTEOPOROSIS PROPHYLAXIS
     Route: 048
     Dates: start: 20170210
  4. TOLTERODIN [Concomitant]
     Active Substance: TOLTERODINE TARTRATE
     Indication: BLADDER IRRITATION
     Dosage: 1 X 1
     Route: 048
  5. SIMVASTATIN. [Concomitant]
     Active Substance: SIMVASTATIN
     Indication: HYPERLIPIDAEMIA
     Dosage: 1 X 1
     Route: 048
     Dates: start: 2005
  6. CANDESARTAN/HYDROCHLOROTHIAZID 16 MG/12.5 MG [Concomitant]
     Indication: HYPERTENSION
     Dosage: 1 X 1
     Route: 048
     Dates: start: 201210

REACTIONS (1)
  - Transient global amnesia [Recovered/Resolved]

NARRATIVE: CASE EVENT DATE: 20170311
